FAERS Safety Report 6209524-8 (Version None)
Quarter: 2009Q2

REPORT INFORMATION
  Report Type: 
  Country: None (occurrence: None)
  Receive Date: 20090601
  Receipt Date: 20090521
  Transmission Date: 20091009
  Serious: Yes (Hospitalization)
  Sender: FDA-Public Use
  Company Number: ES-JNJFOC-20090505038

PATIENT
  Age: 70 Year
  Sex: Female

DRUGS (3)
  1. REMICADE [Suspect]
     Indication: RHEUMATOID ARTHRITIS
     Dosage: 3 INFUSIONS
     Route: 042
  2. DEFLAZACORT [Concomitant]
  3. METHOTREXATE [Concomitant]

REACTIONS (1)
  - DISSEMINATED TUBERCULOSIS [None]
